FAERS Safety Report 8979003 (Version 2)
Quarter: 2013Q1

REPORT INFORMATION
  Report Type: Spontaneous
  Country: BR (occurrence: BR)
  Receive Date: 20121221
  Receipt Date: 20130131
  Transmission Date: 20140127
  Serious: Yes (Hospitalization)
  Sender: FDA-Public Use
  Company Number: BR-B.I. PHARMACEUTICALS,INC./RIDGEFIELD-2012-BR-01410BR

PATIENT
  Age: 81 Year
  Sex: Female
  Weight: 68 kg

DRUGS (6)
  1. SPIRIVA RESPIMAT [Suspect]
     Indication: ASTHMA
     Dosage: 5 MCG
     Route: 055
     Dates: start: 201210
  2. FORASEQ [Concomitant]
     Indication: BRONCHITIS
  3. PREDNISONA [Concomitant]
     Indication: BRONCHITIS
  4. BAMIFIX [Concomitant]
  5. GALVUS [Concomitant]
     Indication: DIABETES MELLITUS
  6. GLIFAGE [Concomitant]
     Indication: DIABETES MELLITUS

REACTIONS (2)
  - Asthma [Recovered/Resolved]
  - Dyspnoea [Recovered/Resolved]
